FAERS Safety Report 6703716-7 (Version None)
Quarter: 2010Q2

REPORT INFORMATION
  Report Type: 
  Country: None (occurrence: None)
  Receive Date: 20100430
  Receipt Date: 20100410
  Transmission Date: 20101027
  Serious: Yes (Other)
  Sender: FDA-Public Use
  Company Number: US-BAYER-201022082GPV

PATIENT
  Age: 11 Month
  Sex: Female

DRUGS (9)
  1. ALEMTUZUMAB [Suspect]
     Indication: OMENN SYNDROME
  2. FLUDARABINE [Suspect]
     Indication: STEM CELL TRANSPLANT
     Dosage: ON DAYS 9, 8, 7, AND 6
  3. RITUXIMAB [Suspect]
     Indication: CORD BLOOD TRANSPLANT THERAPY
  4. RABBIT ANTI-THYMOCYTE GLOBULIN [Suspect]
     Indication: STEM CELL TRANSPLANT
  5. RABBIT ANTI-THYMOCYTE GLOBULIN [Suspect]
     Dosage: ON DAYS 5, 3, AND 2
  6. BUSULFEX [Suspect]
     Indication: CORD BLOOD TRANSPLANT THERAPY
     Dosage: FOR 16 DOSES ON DAYS 8, 7, 6, AND 5
  7. CYCLOPHOSPHAMIDE [Suspect]
     Indication: STEM CELL TRANSPLANT
     Dosage: ON DAYS 4, 3, AND 2
  8. METHYLPREDNISOLONE [Concomitant]
     Indication: PROPHYLAXIS AGAINST GRAFT VERSUS HOST DISEASE
  9. TACROLIMUS [Concomitant]
     Indication: PROPHYLAXIS AGAINST GRAFT VERSUS HOST DISEASE

REACTIONS (6)
  - BLOOD STEM CELL TRANSPLANT FAILURE [None]
  - CHRONIC GRAFT VERSUS HOST DISEASE [None]
  - CLOSTRIDIAL INFECTION [None]
  - MYCOBACTERIUM CHELONEI INFECTION [None]
  - PERICARDIAL EFFUSION [None]
  - PSEUDOMONAS INFECTION [None]
